FAERS Safety Report 9883870 (Version 2)
Quarter: 2014Q1

REPORT INFORMATION
  Report Type: Spontaneous
  Country: JP (occurrence: JP)
  Receive Date: 20140210
  Receipt Date: 20140226
  Transmission Date: 20141002
  Serious: Yes (Hospitalization)
  Sender: FDA-Public Use
  Company Number: JP-ORION CORPORATION ORION PHARMA-ENT 2014-0025

PATIENT
  Age: 69 Year
  Sex: Male

DRUGS (3)
  1. COMTAN [Suspect]
     Indication: PARKINSON^S DISEASE
     Route: 048
  2. ASPIRIN [Concomitant]
     Route: 065
  3. WARFARIN [Concomitant]
     Route: 065

REACTIONS (3)
  - Wrong technique in drug usage process [Unknown]
  - Cerebral infarction [Unknown]
  - Dysphagia [Unknown]
